FAERS Safety Report 20580239 (Version 1)
Quarter: 2022Q1

REPORT INFORMATION
  Report Type: Spontaneous
  Country: CZ (occurrence: CZ)
  Receive Date: 20220310
  Receipt Date: 20220310
  Transmission Date: 20220423
  Serious: Yes (Hospitalization)
  Sender: FDA-Public Use
  Company Number: CZ-BIOGEN-2022BI01104024

PATIENT
  Age: 17 Year
  Sex: Male

DRUGS (1)
  1. TYSABRI [Suspect]
     Active Substance: NATALIZUMAB
     Indication: Product used for unknown indication
     Route: 042
     Dates: start: 20190802

REACTIONS (12)
  - Hemiparesis [Unknown]
  - Tremor [Unknown]
  - Vertigo [Unknown]
  - Nystagmus [Unknown]
  - Sinusitis [Unknown]
  - Intentional self-injury [Unknown]
  - Stress [Unknown]
  - Affect lability [Unknown]
  - Impulsive behaviour [Unknown]
  - Gait disturbance [Unknown]
  - Nervous system disorder [Unknown]
  - Dizziness [Recovered/Resolved]

NARRATIVE: CASE EVENT DATE: 20200101
